FAERS Safety Report 16676783 (Version 1)
Quarter: 2019Q3

REPORT INFORMATION
  Report Type: Report from Study
  Country: US (occurrence: US)
  Receive Date: 20190807
  Receipt Date: 20190807
  Transmission Date: 20191004
  Serious: Yes (Other)
  Sender: FDA-Public Use
  Company Number: US-ROCHE-2364878

PATIENT
  Sex: Female

DRUGS (3)
  1. PERJETA [Suspect]
     Active Substance: PERTUZUMAB
     Indication: NEOPLASM MALIGNANT
     Route: 065
     Dates: start: 20140101
  2. KADCYLA [Concomitant]
     Active Substance: ADO-TRASTUZUMAB EMTANSINE
     Route: 065
  3. HERCEPTIN [Suspect]
     Active Substance: TRASTUZUMAB
     Indication: NEOPLASM MALIGNANT
     Route: 065
     Dates: start: 20140101

REACTIONS (2)
  - Chest discomfort [Recovered/Resolved]
  - Respiratory disorder [Recovered/Resolved]

NARRATIVE: CASE EVENT DATE: 2018
